FAERS Safety Report 9677841 (Version 2)
Quarter: 2014Q3

REPORT INFORMATION
  Report Type: Report from Study
  Country: US (occurrence: US)
  Receive Date: 20131108
  Receipt Date: 20140701
  Transmission Date: 20150326
  Serious: Yes (Hospitalization, Other)
  Sender: FDA-Public Use
  Company Number: US-ABBVIE-13P-163-1163147-00

PATIENT
  Age: 57 Year
  Sex: Male
  Weight: 83.99 kg

DRUGS (4)
  1. HUMIRA [Suspect]
     Active Substance: ADALIMUMAB
     Indication: CROHN^S DISEASE
     Dates: start: 201306, end: 201306
  2. HUMIRA [Suspect]
     Active Substance: ADALIMUMAB
     Dates: end: 20131013
  3. HUMIRA [Suspect]
     Active Substance: ADALIMUMAB
  4. HUMIRA [Suspect]
     Active Substance: ADALIMUMAB

REACTIONS (8)
  - Large intestine perforation [Recovered/Resolved]
  - Therapeutic response changed [Not Recovered/Not Resolved]
  - Arthritis [Not Recovered/Not Resolved]
  - Crohn^s disease [Recovered/Resolved]
  - Intestinal stenosis [Unknown]
  - Abdominal pain [Not Recovered/Not Resolved]
  - Mesenteric abscess [Unknown]
  - Gastric perforation [Recovered/Resolved]

NARRATIVE: CASE EVENT DATE: 2013
